FAERS Safety Report 17732494 (Version 2)
Quarter: 2021Q1

REPORT INFORMATION
  Report Type: Spontaneous
  Country: US (occurrence: US)
  Receive Date: 20200501
  Receipt Date: 20210203
  Transmission Date: 20210419
  Serious: Yes (Death, Hospitalization, Other)
  Sender: FDA-Public Use
  Company Number: US-TEVA-2020-US-1227453

PATIENT
  Age: 91 Year
  Sex: Female

DRUGS (27)
  1. TRAZODONE [Concomitant]
     Active Substance: TRAZODONE HYDROCHLORIDE
  2. VITAMIN C [Concomitant]
     Active Substance: ASCORBIC ACID
  3. METOPROLOL. [Concomitant]
     Active Substance: METOPROLOL
  4. ARMOUR THYROID [Concomitant]
     Active Substance: THYROID, PORCINE
  5. OMEGA 3 [Concomitant]
     Active Substance: OMEGA-3 FATTY ACIDS
  6. VITAMIN E [Concomitant]
     Active Substance: .ALPHA.-TOCOPHEROL
  7. WHEY PROTEIN [Concomitant]
     Active Substance: WHEY
  8. HOMOCYSTEINE. [Concomitant]
     Active Substance: HOMOCYSTEINE
  9. DHEA [Concomitant]
     Active Substance: PRASTERONE
  10. XARELTO [Concomitant]
     Active Substance: RIVAROXABAN
  11. COLOSTRUM [Concomitant]
     Active Substance: DIETARY SUPPLEMENT
  12. MAGNESIUM [Concomitant]
     Active Substance: MAGNESIUM
  13. MELATONIN [Concomitant]
     Active Substance: MELATONIN
  14. MILK THISTLE [Concomitant]
     Active Substance: DIETARY SUPPLEMENT\HERBALS\MILK THISTLE
  15. SELENIUM [Concomitant]
     Active Substance: SELENIUM
  16. TORSEMIDE. [Concomitant]
     Active Substance: TORSEMIDE
  17. COENZYME Q10 [Concomitant]
     Active Substance: DIETARY SUPPLEMENT\UBIDECARENONE
  18. RIBOFLAVIN [Concomitant]
     Active Substance: RIBOFLAVIN
  19. LATANOPROST. [Concomitant]
     Active Substance: LATANOPROST
  20. RESVERATROL [Concomitant]
     Active Substance: DIETARY SUPPLEMENT\RESVERATROL
  21. SYNRIBO [Suspect]
     Active Substance: OMACETAXINE MEPESUCCINATE
     Indication: CHRONIC MYELOID LEUKAEMIA
     Dosage: 2 MILLIGRAM DAILY; FREQUENCY:ONCE DAILY ?DOSE: 1.5MG/M2 (2MG DAILY)
     Route: 065
     Dates: start: 20171208, end: 202006
  22. PROBIOTIC [Concomitant]
     Active Substance: PROBIOTICS NOS
  23. VITAMIN D [Concomitant]
     Active Substance: VITAMIN D NOS
  24. VITAMIN B12 [Concomitant]
     Active Substance: CYANOCOBALAMIN
  25. METHOCARBAMOL. [Concomitant]
     Active Substance: METHOCARBAMOL
  26. ACETYLCYSTINE [Concomitant]
  27. DOXYCYCLINE. [Concomitant]
     Active Substance: DOXYCYCLINE

REACTIONS (9)
  - Oedema [Not Recovered/Not Resolved]
  - Fatigue [Not Recovered/Not Resolved]
  - Cytopenia [Not Recovered/Not Resolved]
  - Cardiac failure congestive [Recovered/Resolved with Sequelae]
  - Death [Fatal]
  - Hospitalisation [Unknown]
  - Product dose omission issue [Unknown]
  - Pyrexia [Recovering/Resolving]
  - Asthenia [Not Recovered/Not Resolved]

NARRATIVE: CASE EVENT DATE: 201902
